FAERS Safety Report 15697375 (Version 1)
Quarter: 2018Q4

REPORT INFORMATION
  Report Type: Spontaneous
  Country: GB (occurrence: GB)
  Receive Date: 20181207
  Receipt Date: 20181207
  Transmission Date: 20190205
  Serious: Yes (Other)
  Sender: FDA-Public Use
  Company Number: GB-TEVA-2018-GB-982881

PATIENT
  Age: 70 Year
  Sex: Male
  Weight: 77 kg

DRUGS (8)
  1. ACETYLSALICYLIC ACID [Concomitant]
     Active Substance: ASPIRIN
     Dosage: 1 DOSAGE FORMS DAILY;
     Dates: start: 20170109
  2. BISOPROLOL [Concomitant]
     Active Substance: BISOPROLOL
     Dosage: 1 DOSAGE FORMS DAILY;
     Dates: start: 20170109
  3. TICAGRELOR. [Concomitant]
     Active Substance: TICAGRELOR
     Dosage: 2 DOSAGE FORMS DAILY;
     Dates: start: 20180814
  4. BUMETANIDE. [Suspect]
     Active Substance: BUMETANIDE
     Dates: start: 20180806
  5. SIMVASTATIN. [Concomitant]
     Active Substance: SIMVASTATIN
     Dosage: 1 DOSAGE FORMS DAILY; NIGHT
     Dates: start: 20170109, end: 20180814
  6. GLYCERYL TRINITRATE [Concomitant]
     Active Substance: NITROGLYCERIN
     Dosage: ONE TO TWO DOSES UNDER THE TONGUE
     Route: 060
     Dates: start: 20180814
  7. TRIMETHOPRIM. [Concomitant]
     Active Substance: TRIMETHOPRIM
     Dosage: 1 DOSAGE FORMS DAILY; NIGHT
     Dates: start: 20150312, end: 20180813
  8. ATORVASTATIN [Concomitant]
     Active Substance: ATORVASTATIN
     Dosage: 1 DOSAGE FORMS DAILY; NIGHT
     Dates: start: 20180814

REACTIONS (1)
  - Swollen tongue [Recovered/Resolved]

NARRATIVE: CASE EVENT DATE: 20181107
